FAERS Safety Report 22126633 (Version 1)
Quarter: 2023Q1

REPORT INFORMATION
  Report Type: Spontaneous
  Country: US (occurrence: US)
  Receive Date: 20230322
  Receipt Date: 20230322
  Transmission Date: 20230418
  Serious: Yes (Death, Other)
  Sender: FDA-Public Use
  Company Number: US-INCYTE CORPORATION-2023IN002878

PATIENT

DRUGS (1)
  1. JAKAFI [Suspect]
     Active Substance: RUXOLITINIB
     Indication: Graft versus host disease
     Dosage: 15 MILLIGRAM, BID
     Route: 048
     Dates: start: 20221130, end: 20230314

REACTIONS (2)
  - Cardiac failure congestive [Fatal]
  - Fibrosis [Fatal]
